FAERS Safety Report 4558176-1 (Version None)
Quarter: 2005Q1

REPORT INFORMATION
  Report Type: 
  Country: None (occurrence: None)
  Receive Date: 20050103
  Receipt Date: 20040926
  Transmission Date: 20050727
  Serious: Yes (Other)
  Sender: FDA-Public Use
  Company Number: 2004UW20465

PATIENT
  Sex: Female

DRUGS (2)
  1. CRESTOR [Suspect]
  2. XENICAL [Suspect]
     Indication: WEIGHT DECREASED

REACTIONS (2)
  - CHANGE OF BOWEL HABIT [None]
  - DRUG INTERACTION [None]
